FAERS Safety Report 11010164 (Version 1)
Quarter: 2015Q2

REPORT INFORMATION
  Report Type: Report from Study
  Country: AU (occurrence: AU)
  Receive Date: 20150410
  Receipt Date: 20150410
  Transmission Date: 20150821
  Serious: Yes (Hospitalization, Other)
  Sender: FDA-Public Use
  Company Number: AU-ABBVIE-15P-008-1373490-00

PATIENT
  Age: 70 Year
  Sex: Male

DRUGS (4)
  1. DUODOPA [Suspect]
     Active Substance: CARBIDOPA\LEVODOPA
     Indication: PRODUCT USED FOR UNKNOWN INDICATION
     Route: 050
     Dates: start: 20120525
  2. DUODOPA [Suspect]
     Active Substance: CARBIDOPA\LEVODOPA
     Dosage: CONT DOSE
     Route: 050
     Dates: end: 20120616
  3. DUODOPA [Suspect]
     Active Substance: CARBIDOPA\LEVODOPA
     Route: 050
     Dates: start: 20120616
  4. DUODOPA [Suspect]
     Active Substance: CARBIDOPA\LEVODOPA
     Route: 050
     Dates: start: 20120529

REACTIONS (14)
  - Muscle rigidity [Unknown]
  - Cerebrovascular accident [Unknown]
  - Pain in extremity [Unknown]
  - Muscle rigidity [Unknown]
  - Dysphagia [Unknown]
  - Dysphagia [Unknown]
  - Intentional medical device removal by patient [Unknown]
  - Muscle spasms [Unknown]
  - Hemiparesis [Unknown]
  - Pneumonia aspiration [Unknown]
  - General physical health deterioration [Unknown]
  - Dyskinesia [Unknown]
  - Hemiplegia [Unknown]
  - Dysstasia [Unknown]

NARRATIVE: CASE EVENT DATE: 2012
